FAERS Safety Report 9270625 (Version 2)
Quarter: 2013Q2

REPORT INFORMATION
  Report Type: Other
  Country: JP (occurrence: JP)
  Receive Date: 20130505
  Receipt Date: 20130517
  Transmission Date: 20140414
  Serious: Yes (Death)
  Sender: FDA-Public Use
  Company Number: JP-US-EMD SERONO, INC.-7208791

PATIENT
  Age: 29 Year
  Sex: Female

DRUGS (1)
  1. CLOMIPHENE CITRATE [Suspect]
     Indication: INFERTILITY

REACTIONS (2)
  - Meningioma malignant [Fatal]
  - Haemorrhage [Fatal]
